FAERS Safety Report 13192189 (Version 1)
Quarter: 2017Q1

REPORT INFORMATION
  Report Type: Report from Study
  Country: None (occurrence: US)
  Receive Date: 20170207
  Receipt Date: 20170207
  Transmission Date: 20170428
  Serious: Yes (Hospitalization, Other)
  Sender: FDA-Public Use
  Company Number: US-ABBVIE-16K-163-1815321-00

PATIENT
  Age: 50 Year
  Sex: Female
  Weight: 53.57 kg

DRUGS (4)
  1. TRAZODONE [Concomitant]
     Active Substance: TRAZODONE HYDROCHLORIDE
     Indication: DEPRESSION
  2. VIBRIDE [Concomitant]
     Indication: DEPRESSION
  3. HUMIRA [Suspect]
     Active Substance: ADALIMUMAB
     Indication: CROHN^S DISEASE
     Route: 058
     Dates: start: 20160419, end: 201605
  4. HUMIRA [Suspect]
     Active Substance: ADALIMUMAB
     Route: 058
     Dates: start: 2016, end: 201610

REACTIONS (11)
  - Intestinal mass [Recovered/Resolved]
  - Rectal abscess [Recovered/Resolved]
  - Night sweats [Unknown]
  - Abdominal pain [Recovered/Resolved]
  - Insomnia [Recovering/Resolving]
  - Sensation of foreign body [Recovering/Resolving]
  - Pharyngeal abscess [Recovering/Resolving]
  - Feeling hot [Unknown]
  - Influenza like illness [Recovered/Resolved]
  - Dysphagia [Recovering/Resolving]
  - Pain [Unknown]

NARRATIVE: CASE EVENT DATE: 201611
